FAERS Safety Report 6186135-4 (Version None)
Quarter: 2009Q2

REPORT INFORMATION
  Report Type: 
  Country: None (occurrence: None)
  Receive Date: 20090507
  Receipt Date: 20090507
  Transmission Date: 20091009
  Serious: Yes (Other)
  Sender: FDA-Public Use
  Company Number: None

PATIENT
  Age: 75 Year
  Sex: Male
  Weight: 83.9154 kg

DRUGS (2)
  1. LEVAQUIN [Suspect]
     Indication: ARTHRITIS INFECTIVE
     Dosage: 1 TWICE DAILY TWICE PO
     Route: 048
     Dates: start: 20090220, end: 20090221
  2. LEVAQUIN [Suspect]
     Indication: LYMPH GLAND INFECTION
     Dosage: 1 TWICE DAILY TWICE PO
     Route: 048
     Dates: start: 20090220, end: 20090221

REACTIONS (2)
  - GAIT DISTURBANCE [None]
  - TENDON PAIN [None]
